FAERS Safety Report 7803558-5 (Version None)
Quarter: 2011Q4

REPORT INFORMATION
  Report Type: 
  Country: None (occurrence: None)
  Receive Date: 20111009
  Receipt Date: 20110930
  Transmission Date: 20120403
  Serious: No
  Sender: FDA-Public Use
  Company Number: US-B.I. PHARMACEUTICALS,INC./RIDGEFIELD-2011-BP-22026BP

PATIENT
  Age: 73 Year
  Sex: Female

DRUGS (7)
  1. SOTALOL HCL [Concomitant]
     Indication: ATRIAL FIBRILLATION
  2. SIMVASTATIN [Concomitant]
     Indication: BLOOD CHOLESTEROL INCREASED
  3. LEVOTHYROXINE SODIUM [Concomitant]
     Indication: HYPOTHYROIDISM
  4. PRADAXA [Suspect]
     Indication: ATRIAL FIBRILLATION
     Dosage: 300 MG
     Route: 048
     Dates: start: 20110601
  5. DIOVAN HCT [Concomitant]
     Indication: HYPERTENSION
  6. METFORMIN HCL [Concomitant]
     Indication: DIABETES MELLITUS
     Dosage: 1500 MG
  7. VENTOLIN [Concomitant]
     Indication: ASTHMA

REACTIONS (1)
  - MUSCLE SPASMS [None]
